FAERS Safety Report 8494308 (Version 7)
Quarter: 2013Q1

REPORT INFORMATION
  Report Type: Spontaneous
  Country: US (occurrence: US)
  Receive Date: 20120404
  Receipt Date: 20130202
  Transmission Date: 20140127
  Serious: Yes (Life-Threatening, Other)
  Sender: FDA-Public Use
  Company Number: CHPA2012US006176

PATIENT
  Sex: Female
  Weight: 55.33 kg

DRUGS (1)
  1. EXCEDRIN MIGRAINE [Suspect]
     Indication: MIGRAINE
     Dosage: 2 DF, QD
     Route: 048
     Dates: start: 201107, end: 20120201

REACTIONS (13)
  - Feeling abnormal [Recovered/Resolved]
  - Respiratory arrest [Recovered/Resolved]
  - Epilepsy [Recovered/Resolved]
  - Dyskinesia [Recovered/Resolved]
  - Muscle contracture [Recovered/Resolved]
  - Hypopnoea [Recovered/Resolved]
  - Dizziness [Recovered/Resolved]
  - Muscle twitching [Recovered/Resolved]
  - Foaming at mouth [Recovered/Resolved]
  - Withdrawal syndrome [Recovered/Resolved]
  - Headache [Recovered/Resolved]
  - Dyspnoea [Recovered/Resolved]
  - Malaise [Recovered/Resolved]
